FAERS Safety Report 9092962 (Version 3)
Quarter: 2013Q2

REPORT INFORMATION
  Report Type: Spontaneous
  Country: TR (occurrence: TR)
  Receive Date: 20130201
  Receipt Date: 20130514
  Transmission Date: 20140414
  Serious: Yes (Hospitalization, Other)
  Sender: FDA-Public Use
  Company Number: TR-PFIZER INC-2012284615

PATIENT
  Age: 43 Year
  Sex: Male

DRUGS (7)
  1. XANAX [Suspect]
     Dosage: 1-2 MG DAILY
     Dates: start: 1997
  2. XANAX [Suspect]
     Dosage: 30-40 MG DAILY
  3. XANAX [Suspect]
     Dosage: 20 - 30 TABLETS OF ALPRAZOLAM 1 MG
  4. XANAX [Suspect]
     Dosage: 50 TABLETS OF ALPRAZOLAM
  5. XANAX [Suspect]
     Dosage: 25 TABLETS OF ALPRAZOLAM
  6. XANAX [Suspect]
     Dosage: 20 NUMBERS OF 1MG ALPRAZOLAM
  7. DOLEX [Concomitant]
     Indication: ANALGESIC THERAPY
     Dosage: UNK

REACTIONS (17)
  - Intentional overdose [Unknown]
  - Drug dependence [Unknown]
  - Drug abuse [Unknown]
  - Fall [Unknown]
  - Depression [Unknown]
  - Memory impairment [Unknown]
  - Speech disorder [Unknown]
  - Vertigo [Unknown]
  - Hyperacusis [Unknown]
  - Headache [Unknown]
  - Malaise [Unknown]
  - Sleep disorder [Unknown]
  - Back pain [Unknown]
  - Diarrhoea [Unknown]
  - Asthenia [Unknown]
  - Impatience [Unknown]
  - Abdominal pain upper [Unknown]
